FAERS Safety Report 4548231-4 (Version None)
Quarter: 2004Q4

REPORT INFORMATION
  Report Type: 
  Country: None (occurrence: None)
  Receive Date: 20041220
  Receipt Date: 20040330
  Transmission Date: 20050328
  Serious: Yes (Hospitalization)
  Sender: FDA-Public Use
  Company Number: US_981214143

PATIENT
  Age: 36 Year
  Sex: Male
  Weight: 80 kg

DRUGS (4)
  1. HUMULIN N [Suspect]
     Indication: DIABETES MELLITUS
  2. HUMULIN R [Suspect]
     Indication: DIABETES MELLITUS
  3. ILETIN-PORK NPH INSULIN (INSULIN, ANIMAL) [Suspect]
     Dosage: 25U/AS NEEDED
  4. REGULAR ILETIN II (PORK) [Suspect]
     Dosage: 15U/4 DAY

REACTIONS (4)
  - BLOOD GLUCOSE INCREASED [None]
  - HYPERSENSITIVITY [None]
  - HYPOGLYCAEMIA [None]
  - RASH MACULAR [None]
